FAERS Safety Report 5108746-7 (Version None)
Quarter: 2006Q3

REPORT INFORMATION
  Report Type: 
  Country: None (occurrence: None)
  Receive Date: 20060915
  Receipt Date: 20060915
  Transmission Date: 20061208
  Serious: Yes (Hospitalization, Other)
  Sender: FDA-Public Use
  Company Number: None

PATIENT
  Sex: Male
  Weight: 97.88 kg

DRUGS (3)
  1. CISPLATIN [Suspect]
     Indication: LARYNGEAL CANCER
     Dosage: SEE IMAGE
     Dates: start: 20060828
  2. ERBITUX [Suspect]
     Dosage: 2221 MG
     Dates: start: 20060828, end: 20060828
  3. AMIFOSTINE [Concomitant]

REACTIONS (1)
  - PYREXIA [None]
